FAERS Safety Report 7546443-9 (Version None)
Quarter: 2011Q2

REPORT INFORMATION
  Report Type: 
  Country: None (occurrence: None)
  Receive Date: 20110607
  Receipt Date: 20110523
  Transmission Date: 20111010
  Serious: Yes (Other)
  Sender: FDA-Public Use
  Company Number: 2011MA006345

PATIENT
  Age: 37 Year
  Sex: Female

DRUGS (2)
  1. VENLAFAXINE [Concomitant]
  2. RISPERIDONE [Suspect]

REACTIONS (5)
  - VOMITING [None]
  - NAUSEA [None]
  - CARDIOVASCULAR DISORDER [None]
  - HYPOTENSION [None]
  - ANTIPSYCHOTIC DRUG LEVEL ABOVE THERAPEUTIC [None]
